FAERS Safety Report 4597056-2 (Version None)
Quarter: 2005Q1

REPORT INFORMATION
  Report Type: 
  Country: None (occurrence: None)
  Receive Date: 20050301
  Receipt Date: 20050215
  Transmission Date: 20050727
  Serious: Yes (Death, Hospitalization)
  Sender: FDA-Public Use
  Company Number: B0370114A

PATIENT
  Age: 16 Year
  Sex: Female

DRUGS (2)
  1. LAMIVUDINE [Suspect]
     Indication: HEPATITIS B
     Dosage: ORAL
  2. INTERFERON ALFA (INTERFERON ALFA) [Suspect]
     Indication: HEPATITIS B

REACTIONS (12)
  - ANAEMIA [None]
  - BLOOD LACTATE DEHYDROGENASE INCREASED [None]
  - BRAIN SCAN ABNORMAL [None]
  - COMA [None]
  - EXTENSOR PLANTAR RESPONSE [None]
  - HEMIPLEGIA [None]
  - HYPOALBUMINAEMIA [None]
  - HYPONATRAEMIA [None]
  - HYPOPROTEINAEMIA [None]
  - MARROW HYPERPLASIA [None]
  - MULTI-ORGAN FAILURE [None]
  - THROMBOTIC THROMBOCYTOPENIC PURPURA [None]
